FAERS Safety Report 12898812 (Version 1)
Quarter: 2016Q4

REPORT INFORMATION
  Report Type: Spontaneous
  Country: AU (occurrence: AU)
  Receive Date: 20161101
  Receipt Date: 20161101
  Transmission Date: 20170207
  Serious: Yes (Life-Threatening, Hospitalization)
  Sender: FDA-Public Use
  Company Number: AU-STRIDES ARCOLAB LIMITED-2016SP016637

PATIENT

DRUGS (1)
  1. IBUPROFEN. [Suspect]
     Active Substance: IBUPROFEN
     Indication: BACK PAIN
     Dosage: UNK

REACTIONS (10)
  - Bradycardia [Recovered/Resolved]
  - Hypouricaemia [Recovered/Resolved]
  - Hypokalaemia [Recovered/Resolved]
  - Hypophosphataemia [Recovered/Resolved]
  - Hypotonia [Recovered/Resolved]
  - Renal tubular acidosis [Recovered/Resolved]
  - Electrocardiogram QT prolonged [Unknown]
  - Renal tubular dysfunction [Recovered/Resolved]
  - Asthenia [Recovered/Resolved]
  - Proteinuria [Recovered/Resolved]
